FAERS Safety Report 20019909 (Version 1)
Quarter: 2021Q4

REPORT INFORMATION
  Report Type: Report from Study
  Country: US (occurrence: US)
  Receive Date: 20211101
  Receipt Date: 20211101
  Transmission Date: 20220304
  Serious: Yes (Other)
  Sender: FDA-Public Use
  Company Number: US-MYLANLABS-2021M1076134

PATIENT
  Sex: Female
  Weight: 91 kg

DRUGS (1)
  1. GLATIRAMER ACETATE [Suspect]
     Active Substance: GLATIRAMER ACETATE
     Indication: Relapsing-remitting multiple sclerosis
     Dosage: 40 MILLIGRAM, 3XW
     Route: 058

REACTIONS (9)
  - Oxygen saturation decreased [Unknown]
  - Weight increased [Unknown]
  - Flushing [Unknown]
  - Palpitations [Unknown]
  - Chest pain [Unknown]
  - Dyspnoea [Unknown]
  - Anxiety [Unknown]
  - Adverse drug reaction [Unknown]
  - Incorrect route of product administration [Unknown]
